FAERS Safety Report 5479164-7 (Version None)
Quarter: 2007Q4

REPORT INFORMATION
  Report Type: 
  Country: None (occurrence: None)
  Receive Date: 20071008
  Receipt Date: 20070928
  Transmission Date: 20080405
  Serious: Yes (Other)
  Sender: FDA-Public Use
  Company Number: PHEH2007US13029

PATIENT
  Age: 60 Year
  Sex: Male

DRUGS (1)
  1. DIOVAN HCT [Suspect]
     Dosage: 160MG VAL/12.5MG HCT, UNK
     Dates: start: 20010101

REACTIONS (5)
  - BLOOD CREATININE INCREASED [None]
  - DIARRHOEA [None]
  - FEELING COLD [None]
  - HERNIA REPAIR [None]
  - RENAL IMPAIRMENT [None]
